FAERS Safety Report 14319368 (Version 1)
Quarter: 2017Q4

REPORT INFORMATION
  Report Type: Spontaneous
  Country: US (occurrence: US)
  Receive Date: 20171222
  Receipt Date: 20171222
  Transmission Date: 20180321
  Serious: Yes (Death)
  Sender: FDA-Public Use
  Company Number: US-PFIZER INC-2017540967

PATIENT
  Age: 20 Year
  Sex: Female

DRUGS (10)
  1. CYCLOBENZAPRINE. [Suspect]
     Active Substance: CYCLOBENZAPRINE
     Dosage: UNK
     Route: 048
  2. FURANYLFENTANYL [Suspect]
     Active Substance: FURANYLFENTANYL
     Dosage: UNK
     Route: 048
  3. CYCLOBENZAPRINE. [Suspect]
     Active Substance: CYCLOBENZAPRINE
     Dosage: UNK
     Route: 065
  4. FURANYLFENTANYL [Suspect]
     Active Substance: FURANYLFENTANYL
     Dosage: UNK
     Route: 065
  5. COCAINE [Suspect]
     Active Substance: COCAINE
     Dosage: UNK
     Route: 048
  6. COCAINE [Suspect]
     Active Substance: COCAINE
     Dosage: UNK
     Route: 065
  7. ALPRAZOLAM. [Suspect]
     Active Substance: ALPRAZOLAM
     Dosage: UNK
     Route: 048
  8. CARFENTANIL [Suspect]
     Active Substance: CARFENTANIL
     Dosage: UNK
     Route: 048
  9. ALPRAZOLAM. [Suspect]
     Active Substance: ALPRAZOLAM
     Dosage: UNK
     Route: 065
  10. CARFENTANIL [Suspect]
     Active Substance: CARFENTANIL
     Dosage: UNK
     Route: 065

REACTIONS (3)
  - Respiratory arrest [Fatal]
  - Drug abuse [Fatal]
  - Cardiac arrest [Fatal]

NARRATIVE: CASE EVENT DATE: 2016
